FAERS Safety Report 25401627 (Version 2)
Quarter: 2025Q2

REPORT INFORMATION
  Report Type: Report from Study
  Country: US (occurrence: US)
  Receive Date: 20250605
  Receipt Date: 20250617
  Transmission Date: 20250716
  Serious: Yes (Hospitalization)
  Sender: CALLIDITAS THERAPEUTICS AB
  Company Number: US-Calliditas-2025CAL01512

PATIENT
  Age: 71 Year
  Sex: Male

DRUGS (5)
  1. TARPEYO [Suspect]
     Active Substance: BUDESONIDE
     Indication: IgA nephropathy
     Route: 048
     Dates: start: 20250506
  2. HYDRALAZINE [Concomitant]
     Active Substance: HYDRALAZINE HYDROCHLORIDE
  3. TORSEMIDE [Concomitant]
     Active Substance: TORSEMIDE
  4. LANTUS [Concomitant]
     Active Substance: INSULIN GLARGINE
  5. HUMULIN NOS [Concomitant]
     Active Substance: INSULIN HUMAN

REACTIONS (12)
  - Dyspnoea [Not Recovered/Not Resolved]
  - Peripheral swelling [Unknown]
  - Insomnia [Unknown]
  - Head discomfort [Unknown]
  - Hyperglycaemia [Unknown]
  - Intervertebral disc disorder [Unknown]
  - Arthropathy [Unknown]
  - Arthritis [Unknown]
  - Weight decreased [Unknown]
  - Loss of personal independence in daily activities [Unknown]
  - Limb discomfort [Unknown]
  - Product administration error [Unknown]

NARRATIVE: CASE EVENT DATE: 20250101
